FAERS Safety Report 8287602-X (Version None)
Quarter: 2012Q2

REPORT INFORMATION
  Report Type: 
  Country: None (occurrence: None)
  Receive Date: 20120411
  Receipt Date: 20120411
  Transmission Date: 20120825
  Serious: Yes (Hospitalization)
  Sender: FDA-Public Use
  Company Number: None

PATIENT
  Age: 63 Year
  Sex: Female
  Weight: 56.4 kg

DRUGS (1)
  1. DRAXIMAGE MDP-25 [Suspect]
     Indication: BONE SCAN
     Dosage: 22 MCI ONCE IV
     Dates: start: 20120323

REACTIONS (1)
  - DYSPNOEA [None]
